FAERS Safety Report 6262269-0 (Version None)
Quarter: 2009Q3

REPORT INFORMATION
  Report Type: 
  Country: None (occurrence: None)
  Receive Date: 20090709
  Receipt Date: 20090629
  Transmission Date: 20100115
  Serious: Yes (Hospitalization)
  Sender: FDA-Public Use
  Company Number: DE-WYE-H09912709

PATIENT
  Age: 41 Year
  Sex: Male

DRUGS (1)
  1. PANTOZOL [Suspect]
     Indication: REFLUX OESOPHAGITIS
     Dosage: STARTED UNKNOWN DATE ABOUT 8 YEARS PRIOR, DOSE IS 40 MG/DAY
     Route: 048

REACTIONS (3)
  - CONDITION AGGRAVATED [None]
  - PROTEIN S DEFICIENCY [None]
  - THROMBOSIS [None]
